FAERS Safety Report 7822151-1 (Version None)
Quarter: 2011Q4

REPORT INFORMATION
  Report Type: 
  Country: None (occurrence: None)
  Receive Date: 20111018
  Receipt Date: 20110620
  Transmission Date: 20120403
  Serious: No
  Sender: FDA-Public Use
  Company Number: US-ASTRAZENECA-2010SE49500

PATIENT
  Sex: Female

DRUGS (3)
  1. SYMBICORT [Suspect]
     Route: 055
  2. PROVENTIL [Concomitant]
  3. SYMBICORT [Suspect]
     Route: 055

REACTIONS (9)
  - CHRONIC OBSTRUCTIVE PULMONARY DISEASE [None]
  - CHEST DISCOMFORT [None]
  - BRONCHITIS [None]
  - NARCOLEPSY [None]
  - DYSPNOEA EXERTIONAL [None]
  - FATIGUE [None]
  - DRUG DOSE OMISSION [None]
  - DYSPNOEA [None]
  - ACTIVITIES OF DAILY LIVING IMPAIRED [None]
